FAERS Safety Report 9548121 (Version 4)
Quarter: 2013Q4

REPORT INFORMATION
  Report Type: Report from Study
  Country: US (occurrence: US)
  Receive Date: 20130924
  Receipt Date: 20131230
  Transmission Date: 20140711
  Serious: Yes (Hospitalization, Other)
  Sender: FDA-Public Use
  Company Number: US-ROCHE-1278726

PATIENT
  Age: 32 Year
  Sex: Female
  Weight: 85.81 kg

DRUGS (5)
  1. PEGASYS [Suspect]
     Indication: CHRONIC HEPATITIS C
     Route: 058
     Dates: start: 20130823
  2. RIBAVIRIN [Suspect]
     Indication: CHRONIC HEPATITIS C
     Dosage: DIVIDED DOSES
     Route: 048
     Dates: start: 20130823
  3. BOCEPREVIR [Suspect]
     Indication: CHRONIC HEPATITIS C
     Route: 065
     Dates: start: 20130920
  4. TRAZODONE [Concomitant]
     Indication: DEPRESSION
  5. LAMICTAL [Concomitant]

REACTIONS (10)
  - Pulmonary thrombosis [Unknown]
  - Blood urine present [Unknown]
  - Nephrolithiasis [Unknown]
  - Pneumonia [Unknown]
  - Back pain [Unknown]
  - Nausea [Unknown]
  - Vomiting [Unknown]
  - Abdominal pain upper [Unknown]
  - Dyspepsia [Unknown]
  - Weight decreased [Unknown]
